FAERS Safety Report 13864222 (Version 1)
Quarter: 2017Q3

REPORT INFORMATION
  Report Type: Spontaneous
  Country: US (occurrence: US)
  Receive Date: 20170811
  Receipt Date: 20170811
  Transmission Date: 20171127
  Serious: Yes (Disabling)
  Sender: FDA-Public Use
  Company Number: None

PATIENT
  Age: 63 Year
  Sex: Female
  Weight: 56.25 kg

DRUGS (13)
  1. HARVONI [Suspect]
     Active Substance: LEDIPASVIR\SOFOSBUVIR
     Indication: HEPATITIS C
     Dosage: QUANTITY:28 TABLET(S);?
     Route: 048
  2. OXYCODONE [Concomitant]
     Active Substance: OXYCODONE
  3. PROTEIN SHAKE [Concomitant]
  4. VITAMIN B12 [Concomitant]
     Active Substance: CYANOCOBALAMIN
  5. RAW D3 [Concomitant]
  6. MIGRELIEF [Concomitant]
  7. METHMAZOLE [Concomitant]
  8. 5-HTP [Concomitant]
     Active Substance: OXITRIPTAN
  9. CALCIUM -MAGNESIUM CITRATE [Concomitant]
  10. XANAX [Concomitant]
     Active Substance: ALPRAZOLAM
  11. ZINC. [Concomitant]
     Active Substance: ZINC
  12. ESTER C [Concomitant]
  13. FOLIC ACID. [Concomitant]
     Active Substance: FOLIC ACID

REACTIONS (12)
  - Skin warm [None]
  - Dizziness [None]
  - Pain [None]
  - Hypotension [None]
  - Full blood count decreased [None]
  - Hyperthyroidism [None]
  - Septic shock [None]
  - Hypothalamo-pituitary disorder [None]
  - Blood potassium increased [None]
  - Anxiety [None]
  - Bedridden [None]
  - Fatigue [None]

NARRATIVE: CASE EVENT DATE: 20161105
